FAERS Safety Report 12774311 (Version 6)
Quarter: 2017Q2

REPORT INFORMATION
  Report Type: Spontaneous
  Country: US (occurrence: US)
  Receive Date: 20160923
  Receipt Date: 20170503
  Transmission Date: 20170830
  Serious: Yes (Death, Hospitalization, Other)
  Sender: FDA-Public Use
  Company Number: US-PFIZER INC-2016442777

PATIENT
  Age: 62 Year
  Sex: Male
  Weight: 143 kg

DRUGS (2)
  1. SUTENT [Suspect]
     Active Substance: SUNITINIB MALATE
     Indication: METASTATIC GASTRIC CANCER
  2. SUTENT [Suspect]
     Active Substance: SUNITINIB MALATE
     Indication: GASTROINTESTINAL STROMAL TUMOUR
     Dosage: 50 MG, CYCLIC (D1-D28, Q 42 D) (DAILY FOR 4 WEEKS OF EVERY 6 WEEKS)
     Route: 048
     Dates: start: 20160908

REACTIONS (21)
  - Fluid overload [Unknown]
  - Dyspnoea [Unknown]
  - Dry skin [Unknown]
  - Hypersomnia [Unknown]
  - Gastrooesophageal reflux disease [Unknown]
  - Dehydration [Unknown]
  - Decubitus ulcer [Unknown]
  - Nausea [Unknown]
  - Hyperphagia [Unknown]
  - Blister [Unknown]
  - Deep vein thrombosis [Unknown]
  - Vomiting [Unknown]
  - Neoplasm progression [Unknown]
  - Pain [Unknown]
  - Weight decreased [Unknown]
  - Inguinal hernia [Unknown]
  - Death [Fatal]
  - Thrombosis [Unknown]
  - Pollakiuria [Unknown]
  - Diarrhoea [Unknown]
  - Flatulence [Unknown]

NARRATIVE: CASE EVENT DATE: 20170417
